FAERS Safety Report 16744952 (Version 1)
Quarter: 2019Q3

REPORT INFORMATION
  Report Type: Spontaneous
  Country: US (occurrence: US)
  Receive Date: 20190827
  Receipt Date: 20190827
  Transmission Date: 20191005
  Serious: No
  Sender: FDA-Public Use
  Company Number: US-ASTRAZENECA-2019SF09491

PATIENT

DRUGS (2)
  1. FARXIGA [Suspect]
     Active Substance: DAPAGLIFLOZIN PROPANEDIOL
     Dosage: UNKNOWN
     Route: 048
  2. BYDUREON BCISE [Suspect]
     Active Substance: EXENATIDE
     Dosage: UNKNOWN
     Route: 065

REACTIONS (3)
  - Blood glucose increased [Unknown]
  - Blood glucose decreased [Unknown]
  - Malaise [Unknown]
